FAERS Safety Report 25471849 (Version 2)
Quarter: 2025Q3

REPORT INFORMATION
  Report Type: Spontaneous
  Country: US (occurrence: US)
  Receive Date: 20250624
  Receipt Date: 20250703
  Transmission Date: 20251021
  Serious: Yes (Other)
  Sender: NOVO NORDISK
  Company Number: US-NOVOPROD-1461432

PATIENT
  Age: 72 Year
  Sex: Male

DRUGS (2)
  1. TRESIBA [Suspect]
     Active Substance: INSULIN DEGLUDEC
     Indication: Type 2 diabetes mellitus
     Dosage: 100 IU, QD
     Dates: start: 2016
  2. HUMULIN R [Concomitant]
     Active Substance: INSULIN HUMAN
     Indication: Product used for unknown indication

REACTIONS (6)
  - Chronic kidney disease [Not Recovered/Not Resolved]
  - Chronic kidney disease [Recovered/Resolved]
  - Ill-defined disorder [Not Recovered/Not Resolved]
  - Hypoglycaemia [Unknown]
  - Hyperglycaemia [Unknown]
  - Therapeutic product effect decreased [Unknown]

NARRATIVE: CASE EVENT DATE: 20160101
